FAERS Safety Report 8791148 (Version 1)
Quarter: 2012Q4

REPORT INFORMATION
  Report Type: Spontaneous
  Country: US (occurrence: None)
  Receive Date: 20120914
  Receipt Date: 20120914
  Transmission Date: 20130627
  Serious: No
  Sender: FDA-Public Use
  Company Number: None

PATIENT
  Age: 39 Year
  Sex: Female

DRUGS (1)
  1. COPAXONE [Suspect]
     Indication: MS
     Route: 058
     Dates: start: 20120726, end: 201208

REACTIONS (4)
  - Vision blurred [None]
  - Gait disturbance [None]
  - Rash [None]
  - Feeling drunk [None]
